FAERS Safety Report 24105765 (Version 1)
Quarter: 2024Q3

REPORT INFORMATION
  Report Type: Spontaneous
  Country: US (occurrence: US)
  Receive Date: 20240717
  Receipt Date: 20240717
  Transmission Date: 20241017
  Serious: No
  Sender: JOHNSON AND JOHNSON
  Company Number: US-JNJFOC-20240743721

PATIENT
  Sex: Female

DRUGS (2)
  1. STELARA [Suspect]
     Active Substance: USTEKINUMAB
     Indication: Psoriatic arthropathy
     Route: 058
     Dates: start: 20240627
  2. STELARA [Suspect]
     Active Substance: USTEKINUMAB

REACTIONS (8)
  - Vulvovaginal pruritus [Unknown]
  - Dizziness [Unknown]
  - Hyperhidrosis [Unknown]
  - Myalgia [Unknown]
  - Fatigue [Unknown]
  - Arthralgia [Unknown]
  - Rash [Unknown]
  - Breast pain [Unknown]

NARRATIVE: CASE EVENT DATE: 20240702
